FAERS Safety Report 8780187 (Version 1)
Quarter: 2012Q4

REPORT INFORMATION
  Report Type: Spontaneous
  Country: US (occurrence: None)
  Receive Date: 20120831
  Receipt Date: 20120831
  Transmission Date: 20130627
  Serious: Yes (Other)
  Sender: FDA-Public Use
  Company Number: None

PATIENT
  Age: 52 Year
  Sex: Female
  Weight: 102.51 kg

DRUGS (5)
  1. MABTHERA [Suspect]
     Dosage: (041)
     Route: 042
     Dates: start: 20120123
  2. BENDADRYL [Concomitant]
  3. SOLUMEDROL(METHYLPREDNISOLONE SODIUM SUCCINATE) INFUSION [Concomitant]
  4. LEVOXYL [Concomitant]
  5. LIPITOR [Concomitant]

REACTIONS (2)
  - Chest pain [None]
  - Dyspnoea [None]
